FAERS Safety Report 9761044 (Version 1)
Quarter: 2013Q4

REPORT INFORMATION
  Report Type: Spontaneous
  Country: US (occurrence: US)
  Receive Date: 20131216
  Receipt Date: 20131216
  Transmission Date: 20140711
  Serious: No
  Sender: FDA-Public Use
  Company Number: US-PFIZER INC-2013356042

PATIENT
  Age: 65 Year
  Sex: Female

DRUGS (1)
  1. VFEND [Suspect]
     Indication: BLASTOMYCOSIS
     Dosage: 200 MG, 2X/DAY
     Dates: start: 20131029

REACTIONS (1)
  - Dyspnoea [Unknown]
